FAERS Safety Report 19280526 (Version 1)
Quarter: 2021Q2

REPORT INFORMATION
  Report Type: Spontaneous
  Country: JP (occurrence: JP)
  Receive Date: 20210520
  Receipt Date: 20210520
  Transmission Date: 20210717
  Serious: Yes (Other)
  Sender: FDA-Public Use
  Company Number: JP-ORPHANEU-2021001873

PATIENT

DRUGS (3)
  1. UNSPECIFIED PASIREOTIDE LAR [Suspect]
     Active Substance: PASIREOTIDE
     Indication: DISEASE RECURRENCE
  2. UNSPECIFIED PASIREOTIDE LAR [Suspect]
     Active Substance: PASIREOTIDE
     Indication: PITUITARY-DEPENDENT CUSHING^S SYNDROME
     Dosage: 40 MILLIGRAM, QM
  3. UNSPECIFIED PASIREOTIDE LAR [Suspect]
     Active Substance: PASIREOTIDE
     Indication: ACROMEGALY

REACTIONS (1)
  - Adrenal insufficiency [Unknown]
